FAERS Safety Report 4440417-2 (Version None)
Quarter: 2004Q3

REPORT INFORMATION
  Report Type: 
  Country: None (occurrence: None)
  Receive Date: 20040901
  Receipt Date: 20040901
  Transmission Date: 20050211
  Serious: Yes (Life-Threatening)
  Sender: FDA-Public Use
  Company Number: None

PATIENT
  Sex: Male
  Weight: 74.3 kg

DRUGS (2)
  1. RISPERDAL [Suspect]
     Indication: SCHIZOPHRENIA
     Dosage: 8 MG Q HS ORAL
     Route: 048
     Dates: start: 20030516, end: 20030601
  2. AMANTADINE HCL [Concomitant]

REACTIONS (8)
  - BLOOD CREATININE INCREASED [None]
  - CATATONIA [None]
  - DYSARTHRIA [None]
  - DYSPHAGIA [None]
  - HYPERTHERMIA [None]
  - MENTAL STATUS CHANGES [None]
  - MUSCLE RIGIDITY [None]
  - NEUROLEPTIC MALIGNANT SYNDROME [None]
